FAERS Safety Report 16629276 (Version 4)
Quarter: 2020Q4

REPORT INFORMATION
  Report Type: Report from Study
  Country: US (occurrence: US)
  Receive Date: 20190725
  Receipt Date: 20201016
  Transmission Date: 20210113
  Serious: Yes (Hospitalization)
  Sender: FDA-Public Use
  Company Number: US-ACADIA PHARMACEUTICALS INC.-ACA-2019-013311

PATIENT
  Age: 68 Year
  Sex: Female

DRUGS (4)
  1. NUPLAZID [Suspect]
     Active Substance: PIMAVANSERIN TARTRATE
     Indication: DELUSION
  2. SEROQUEL [Concomitant]
     Active Substance: QUETIAPINE FUMARATE
     Indication: PRODUCT USED FOR UNKNOWN INDICATION
  3. NUPLAZID [Suspect]
     Active Substance: PIMAVANSERIN TARTRATE
     Indication: PARKINSON^S DISEASE PSYCHOSIS
     Dosage: 34 MG, QD
     Route: 048
     Dates: start: 201906
  4. NUPLAZID [Suspect]
     Active Substance: PIMAVANSERIN TARTRATE
     Indication: HALLUCINATION

REACTIONS (10)
  - Gastroenteritis viral [Unknown]
  - Diarrhoea [Unknown]
  - Fall [Unknown]
  - Dehydration [Unknown]
  - Head injury [Unknown]
  - Delusion [Unknown]
  - Hallucination [Recovered/Resolved]
  - Drug ineffective [Unknown]
  - Nightmare [Unknown]
  - Fear [Unknown]

NARRATIVE: CASE EVENT DATE: 2019
